FAERS Safety Report 15059138 (Version 1)
Quarter: 2018Q2

REPORT INFORMATION
  Report Type: Spontaneous
  Country: DE (occurrence: DE)
  Receive Date: 20180625
  Receipt Date: 20180625
  Transmission Date: 20180711
  Serious: Yes (Hospitalization)
  Sender: FDA-Public Use
  Company Number: DE-AUROBINDO-AUR-APL-2018-032030

PATIENT
  Age: 72 Year
  Sex: Male
  Weight: 85 kg

DRUGS (6)
  1. QUENTIAX [Suspect]
     Active Substance: QUETIAPINE FUMARATE
     Dosage: UNK
     Route: 065
     Dates: end: 201805
  2. QUENTIAX [Suspect]
     Active Substance: QUETIAPINE FUMARATE
     Indication: PRODUCT USED FOR UNKNOWN INDICATION
     Dosage: UNK
     Route: 048
     Dates: start: 201805, end: 201805
  3. PREGABALIN. [Suspect]
     Active Substance: PREGABALIN
     Dosage: UNK
     Route: 048
     Dates: start: 201805, end: 201805
  4. QUENTIAX [Suspect]
     Active Substance: QUETIAPINE FUMARATE
     Dosage: UNK
  5. PREGABALIN. [Suspect]
     Active Substance: PREGABALIN
     Indication: PRODUCT USED FOR UNKNOWN INDICATION
     Dosage: UNK
     Route: 065
     Dates: end: 201805
  6. VENLAFAXINE [Suspect]
     Active Substance: VENLAFAXINE HYDROCHLORIDE
     Indication: PRODUCT USED FOR UNKNOWN INDICATION
     Dosage: UNK
     Route: 048
     Dates: start: 201805, end: 201805

REACTIONS (5)
  - Hypotension [Unknown]
  - Suicide attempt [Unknown]
  - Diastolic hypotension [Unknown]
  - Intentional overdose [Unknown]
  - Coma [Unknown]

NARRATIVE: CASE EVENT DATE: 201805
